FAERS Safety Report 9339263 (Version 4)
Quarter: 2014Q1

REPORT INFORMATION
  Report Type: Report from Study
  Country: JP (occurrence: JP)
  Receive Date: 20130610
  Receipt Date: 20140114
  Transmission Date: 20141002
  Serious: Yes (Hospitalization)
  Sender: FDA-Public Use
  Company Number: JP-PFIZER INC-2013170329

PATIENT
  Age: 30 Year
  Sex: Female
  Weight: 58.5 kg

DRUGS (9)
  1. CRIZOTINIB [Suspect]
     Indication: NON-SMALL CELL LUNG CANCER
     Dosage: 250 MG, 2X/DAY
     Route: 048
     Dates: start: 20121204, end: 20130101
  2. CRIZOTINIB [Suspect]
     Dosage: 200 MG, 2X/DAY
     Route: 048
     Dates: start: 20130115, end: 20130227
  3. NOVAMIN [Concomitant]
     Dosage: 5 MG, 3X/DAY
     Route: 048
     Dates: start: 20121205, end: 20121227
  4. PACIF [Concomitant]
     Dosage: 30 MG, 1X/DAY
     Route: 048
     Dates: start: 20121129
  5. LOXONIN [Concomitant]
     Dosage: 60 MG, 3X/DAY
     Route: 048
     Dates: start: 20121129
  6. PARIET [Concomitant]
     Dosage: 10 MG, 1X/DAY
     Route: 048
     Dates: start: 20121207
  7. RINDERON [Concomitant]
     Dosage: 2 MG, 1X/DAY
     Dates: start: 20121215, end: 20130227
  8. MAGMITT [Concomitant]
     Dosage: 1 G, 3X/DAY
     Route: 048
     Dates: start: 20121228
  9. PROMAC /JPN/ [Concomitant]
     Dosage: TWICE DAILY
     Route: 048
     Dates: start: 20121207

REACTIONS (2)
  - Hepatotoxicity [Recovering/Resolving]
  - Interstitial lung disease [Recovering/Resolving]
